FAERS Safety Report 6714511-7 (Version None)
Quarter: 2010Q2

REPORT INFORMATION
  Report Type: 
  Country: None (occurrence: None)
  Receive Date: 20100506
  Receipt Date: 20100503
  Transmission Date: 20101027
  Serious: Yes (Hospitalization)
  Sender: FDA-Public Use
  Company Number: US-GILEAD-2010-0028889

PATIENT
  Sex: Female
  Weight: 73.6 kg

DRUGS (7)
  1. LETAIRIS [Suspect]
     Indication: PULMONARY ARTERIAL HYPERTENSION
     Route: 048
     Dates: start: 20100211
  2. REVATIO [Concomitant]
  3. PROTONIX [Concomitant]
  4. CENTRUM [Concomitant]
  5. VITAMIN C [Concomitant]
  6. VITAMIN B COMPLEX TAB [Concomitant]
  7. ASPIRIN [Concomitant]

REACTIONS (2)
  - COUGH [None]
  - DYSPNOEA [None]
